FAERS Safety Report 10765651 (Version 1)
Quarter: 2015Q1

REPORT INFORMATION
  Report Type: Spontaneous
  Country: US (occurrence: None)
  Receive Date: 20150204
  Receipt Date: 20150204
  Transmission Date: 20150721
  Serious: No
  Sender: FDA-Public Use
  Company Number: None

PATIENT
  Age: 19 Year
  Sex: Female
  Weight: 52 kg

DRUGS (4)
  1. METOCLOPRAMIDE. [Concomitant]
     Active Substance: METOCLOPRAMIDE
  2. VANCOMYCIN [Suspect]
     Active Substance: VANCOMYCIN
     Indication: CARDIAC RESYNCHRONISATION THERAPY
     Route: 042
     Dates: start: 20141223
  3. FENTANYL. [Concomitant]
     Active Substance: FENTANYL
  4. CEFAZOLIN [Concomitant]
     Active Substance: CEFAZOLIN

REACTIONS (2)
  - Pruritus [None]
  - Flushing [None]

NARRATIVE: CASE EVENT DATE: 20141223
